FAERS Safety Report 9165639 (Version 1)
Quarter: 2013Q1

REPORT INFORMATION
  Report Type: Spontaneous
  Country: US (occurrence: US)
  Receive Date: 20130315
  Receipt Date: 20130315
  Transmission Date: 20140127
  Serious: Yes (Other)
  Sender: FDA-Public Use
  Company Number: US-PFIZER INC-2013083603

PATIENT
  Age: 50 Year
  Sex: Male

DRUGS (3)
  1. AZITHROMYCIN [Suspect]
     Indication: SINUSITIS
     Dosage: 500 MG (TWO 250MG TABLET ONCE A DAY ON FIRST DAY)
     Route: 048
     Dates: start: 20130228, end: 20130228
  2. AZITHROMYCIN [Suspect]
     Dosage: 250 MG, 1X/DAY
     Route: 048
     Dates: start: 20130301, end: 20130304
  3. AMLODIPINE [Concomitant]
     Dosage: UNK

REACTIONS (1)
  - Deafness unilateral [Not Recovered/Not Resolved]
